FAERS Safety Report 19647183 (Version 2)
Quarter: 2021Q3

REPORT INFORMATION
  Report Type: Spontaneous
  Country: JP (occurrence: JP)
  Receive Date: 20210802
  Receipt Date: 20210805
  Transmission Date: 20211014
  Serious: Yes (Other)
  Sender: FDA-Public Use
  Company Number: JP-PFIZER INC-202100962699

PATIENT
  Age: 6 Year
  Sex: Male

DRUGS (2)
  1. INFLIXIMAB [Suspect]
     Active Substance: INFLIXIMAB
     Indication: INFLAMMATORY BOWEL DISEASE
     Dosage: 5 MG/KG (BIMONTHLY)
  2. CEFAZOLIN [Concomitant]
     Active Substance: CEFAZOLIN
     Indication: LYMPHADENITIS

REACTIONS (1)
  - Lymphadenitis [Recovering/Resolving]
